FAERS Safety Report 25536995 (Version 2)
Quarter: 2025Q3

REPORT INFORMATION
  Report Type: Spontaneous
  Country: JP (occurrence: JP)
  Receive Date: 20250710
  Receipt Date: 20250728
  Transmission Date: 20251020
  Serious: Yes (Hospitalization)
  Sender: BEIGENE
  Company Number: JP-BEIGENE-BGN-2025-010870

PATIENT
  Age: 69 Year

DRUGS (19)
  1. BRUKINSA [Suspect]
     Active Substance: ZANUBRUTINIB
     Indication: Waldenstrom^s macroglobulinaemia
     Dosage: 160 MILLIGRAM, BID
  2. BRUKINSA [Suspect]
     Active Substance: ZANUBRUTINIB
  3. FEBUXOSTAT [Concomitant]
     Active Substance: FEBUXOSTAT
  4. LINZESS [Concomitant]
     Active Substance: LINACLOTIDE
  5. CILNIDIPINE [Concomitant]
     Active Substance: CILNIDIPINE
  6. NIFEDIPINE [Concomitant]
     Active Substance: NIFEDIPINE
  7. AZILSARTAN KAMEDOXOMIL [Concomitant]
     Active Substance: AZILSARTAN KAMEDOXOMIL
  8. TRAMADOL [Concomitant]
     Active Substance: TRAMADOL
  9. FEXOFENADINE HYDROCHLORIDE [Concomitant]
     Active Substance: FEXOFENADINE HYDROCHLORIDE
  10. SENNOSIDES [Concomitant]
     Active Substance: SENNOSIDES
  11. AMITIZA [Concomitant]
     Active Substance: LUBIPROSTONE
  12. BROTIZOLAM [Concomitant]
     Active Substance: BROTIZOLAM
  13. CALCIUM CARBONATE [Concomitant]
     Active Substance: CALCIUM CARBONATE
  14. METHYLCOBALAMIN [Concomitant]
     Active Substance: METHYLCOBALAMIN
  15. BIXALOMER [Concomitant]
     Active Substance: BIXALOMER
  16. CALONAL [Concomitant]
     Active Substance: ACETAMINOPHEN
  17. ATOVAQUONE [Concomitant]
     Active Substance: ATOVAQUONE
  18. LULICONAZOLE [Concomitant]
     Active Substance: LULICONAZOLE
  19. BONALON [Concomitant]
     Active Substance: ALENDRONATE SODIUM

REACTIONS (1)
  - Spinal fracture [Unknown]
